FAERS Safety Report 9027852 (Version 1)
Quarter: 2013Q1

REPORT INFORMATION
  Report Type: Spontaneous
  Country: US (occurrence: None)
  Receive Date: 20130115
  Receipt Date: 20130115
  Transmission Date: 20140127
  Serious: Yes (Other)
  Sender: FDA-Public Use
  Company Number: None

PATIENT
  Age: 66 Year
  Sex: Female
  Weight: 107.7 kg

DRUGS (1)
  1. IRON SUCROSE [Suspect]
     Indication: ANAEMIA
     Route: 040
     Dates: start: 201207, end: 201210

REACTIONS (6)
  - Local swelling [None]
  - Joint swelling [None]
  - Speech disorder [None]
  - Swollen tongue [None]
  - Pruritus [None]
  - Arthralgia [None]
